FAERS Safety Report 9417233 (Version 1)
Quarter: 2013Q3

REPORT INFORMATION
  Report Type: Spontaneous
  Country: US (occurrence: US)
  Receive Date: 20130724
  Receipt Date: 20130724
  Transmission Date: 20140515
  Serious: No
  Sender: FDA-Public Use
  Company Number: US-BAUSCH-BL-2013-002618

PATIENT
  Age: 13 Year
  Sex: Male

DRUGS (1)
  1. OPCON-A [Suspect]
     Indication: DRY EYE
     Dosage: 1 DROP; ONCE; RIGHT EYE
     Route: 047
     Dates: start: 201304, end: 201304

REACTIONS (2)
  - Off label use [Recovered/Resolved]
  - Eye irritation [Recovered/Resolved]
